FAERS Safety Report 20754496 (Version 1)
Quarter: 2022Q2

REPORT INFORMATION
  Report Type: Spontaneous
  Country: CN (occurrence: CN)
  Receive Date: 20220426
  Receipt Date: 20220426
  Transmission Date: 20220721
  Serious: Yes (Other)
  Sender: FDA-Public Use
  Company Number: CN-BAXTER-2022BAX008735

PATIENT
  Age: 10 Year
  Sex: Male
  Weight: 38 kg

DRUGS (8)
  1. CYCLOPHOSPHAMIDE [Suspect]
     Active Substance: CYCLOPHOSPHAMIDE
     Indication: Acute lymphocytic leukaemia
     Dosage: FIRST INDUCTION CHEMOTHERAPY: CYCLOPHOSPHAMIDE FOR INJECTION + NS
     Route: 041
  2. CYCLOPHOSPHAMIDE [Suspect]
     Active Substance: CYCLOPHOSPHAMIDE
     Dosage: CYCLOPHOSPHAMIDE FOR INJECTION (1230 MG) + NS (250 ML)
     Route: 041
     Dates: start: 20220312, end: 20220312
  3. CYCLOPHOSPHAMIDE [Suspect]
     Active Substance: CYCLOPHOSPHAMIDE
     Dosage: DOSE RE-INTRODUCED: CYCLOPHOSPHAMIDE + NS
     Route: 041
  4. SODIUM CHLORIDE [Suspect]
     Active Substance: SODIUM CHLORIDE
     Indication: Medication dilution
     Dosage: FIRST INDUCTION CHEMOTHERAPY: CYCLOPHOSPHAMIDE FOR INJECTION + NS
     Route: 041
  5. SODIUM CHLORIDE [Suspect]
     Active Substance: SODIUM CHLORIDE
     Dosage: CYCLOPHOSPHAMIDE FOR INJECTION (1230 MG) + NS (250 ML)
     Route: 041
     Dates: start: 20220312, end: 20220312
  6. SODIUM CHLORIDE [Suspect]
     Active Substance: SODIUM CHLORIDE
     Dosage: DOSE RE-INTRODUCED: CYCLOPHOSPHAMIDE FOR INJECTION + NS
     Route: 041
  7. MESNA [Suspect]
     Active Substance: MESNA
     Indication: Prophylaxis
     Route: 065
     Dates: start: 20220312
  8. TROPISETRON HYDROCHLORIDE [Concomitant]
     Active Substance: TROPISETRON HYDROCHLORIDE
     Indication: Adverse event
     Dosage: BEFORE ADVERSE EVENT
     Route: 065
     Dates: start: 20220312

REACTIONS (2)
  - Vomiting [Recovering/Resolving]
  - Diarrhoea [Recovering/Resolving]

NARRATIVE: CASE EVENT DATE: 20220312
